FAERS Safety Report 17515180 (Version 1)
Quarter: 2020Q1

REPORT INFORMATION
  Report Type: Spontaneous
  Country: GB (occurrence: GB)
  Receive Date: 20200309
  Receipt Date: 20200309
  Transmission Date: 20200409
  Serious: Yes (Other)
  Sender: FDA-Public Use
  Company Number: GB-TEVA-2020-GB-1195442

PATIENT
  Age: 89 Year
  Sex: Male
  Weight: 73 kg

DRUGS (7)
  1. RAMIPRIL. [Concomitant]
     Active Substance: RAMIPRIL
     Dosage: 1 DOSAGE FORM
     Dates: start: 20190304
  2. DOXYCYCLINE. [Concomitant]
     Active Substance: DOXYCYCLINE
     Dosage: TWO NOW THEN ONE DAILY
     Dates: start: 20200113
  3. CLOPIDOGREL [Concomitant]
     Active Substance: CLOPIDOGREL BISULFATE
     Dosage: 1 DOSAGE FORM
     Dates: start: 20190730
  4. AZOPT [Concomitant]
     Active Substance: BRINZOLAMIDE
     Dosage: 2 GTT, LEFT EYE
     Dates: start: 20181130
  5. HYLO-FORTE [Concomitant]
     Active Substance: HYALURONATE SODIUM
     Dosage: ONE DROP TWICE DAILY TO BOTH EYES
     Dates: start: 20190418
  6. PARACETAMOL [Concomitant]
     Active Substance: ACETAMINOPHEN
     Indication: PAIN
     Dosage: 8 DOSAGE FORM
     Dates: start: 20190226
  7. AMOXICILLIN. [Suspect]
     Active Substance: AMOXICILLIN
     Dosage: 500 MILLIGRAM
     Dates: start: 20200113

REACTIONS (3)
  - Dyspnoea [Unknown]
  - Swollen tongue [Unknown]
  - Lip swelling [Recovered/Resolved]

NARRATIVE: CASE EVENT DATE: 20200113
